FAERS Safety Report 18804277 (Version 2)
Quarter: 2021Q1

REPORT INFORMATION
  Report Type: Other
  Country: US (occurrence: US)
  Receive Date: 20210128
  Receipt Date: 20210218
  Transmission Date: 20210419
  Serious: Yes (Hospitalization, Other)
  Sender: FDA-Public Use
  Company Number: US-INTERCEPT-PM2021000181

PATIENT
  Age: 57 Year
  Sex: Female

DRUGS (4)
  1. URSODIOL. [Concomitant]
     Active Substance: URSODIOL
     Dosage: 300 MILLIGRAM, QD
     Route: 048
  2. OCALIVA [Suspect]
     Active Substance: OBETICHOLIC ACID
     Indication: PRIMARY BILIARY CHOLANGITIS
     Dosage: 5 MILLIGRAM, QD
     Route: 048
     Dates: start: 20190628
  3. VITAMINS NOS [Concomitant]
     Active Substance: VITAMINS
     Dosage: 1 TAB, BID
     Route: 048
  4. OCALIVA [Suspect]
     Active Substance: OBETICHOLIC ACID
     Dosage: 10 MILLIGRAM, QD
     Route: 048

REACTIONS (21)
  - Flank pain [Unknown]
  - Leukocytosis [Unknown]
  - Cholangitis [Unknown]
  - Gallbladder cholesterolosis [Unknown]
  - Abdominal pain [Unknown]
  - Malaise [Unknown]
  - Hiatus hernia [Unknown]
  - Haemangioma [Unknown]
  - Abdominal tenderness [Unknown]
  - Cholecystitis acute [Unknown]
  - Biliary dilatation [Unknown]
  - Headache [Unknown]
  - Uterine leiomyoma [Unknown]
  - Fatigue [Unknown]
  - Gallbladder enlargement [Unknown]
  - Muscle spasms [Unknown]
  - Cholecystectomy [Recovered/Resolved]
  - Cholelithiasis [Recovered/Resolved]
  - Abdominal pain upper [Unknown]
  - Atelectasis [Unknown]
  - Cholecystitis infective [Unknown]

NARRATIVE: CASE EVENT DATE: 2020
